FAERS Safety Report 16095047 (Version 1)
Quarter: 2019Q2

REPORT INFORMATION
  Report Type: Spontaneous
  Country: US (occurrence: US)
  Receive Date: 20190320
  Receipt Date: 20190320
  Transmission Date: 20190711
  Serious: Yes (Other)
  Sender: FDA-Public Use
  Company Number: None

PATIENT
  Age: 44 Year
  Sex: Female
  Weight: 99 kg

DRUGS (8)
  1. DULOXETINE. [Suspect]
     Active Substance: DULOXETINE
     Indication: PAIN
     Dosage: ?          QUANTITY:1 CAPSULE(S);?
     Route: 048
     Dates: start: 20190109, end: 20190311
  2. METFORMIN [Concomitant]
     Active Substance: METFORMIN HYDROCHLORIDE
  3. FISH OIL [Concomitant]
     Active Substance: FISH OIL
  4. MULTIVITAMIN [Concomitant]
     Active Substance: VITAMINS
  5. TURMERIC [Concomitant]
     Active Substance: HERBALS\TURMERIC
  6. JARDIANCE [Concomitant]
     Active Substance: EMPAGLIFLOZIN
  7. PHENTERMINE. [Concomitant]
     Active Substance: PHENTERMINE
  8. LISINOPRIL. [Concomitant]
     Active Substance: LISINOPRIL

REACTIONS (2)
  - Mood altered [None]
  - Cognitive disorder [None]

NARRATIVE: CASE EVENT DATE: 20190311
